FAERS Safety Report 5580621-3 (Version None)
Quarter: 2007Q4

REPORT INFORMATION
  Report Type: 
  Country: None (occurrence: None)
  Receive Date: 20071130
  Receipt Date: 20070709
  Transmission Date: 20080405
  Serious: No
  Sender: FDA-Public Use
  Company Number: US200707002599

PATIENT
  Age: 66 Year
  Sex: Female
  Weight: 104.3 kg

DRUGS (7)
  1. BYETTA [Suspect]
     Indication: TYPE 2 DIABETES MELLITUS
     Dosage: 5 UG, 2/D, 10 UG, 2/D,  SUBCUTANEOUS
     Route: 058
     Dates: start: 20070501, end: 20070601
  2. BYETTA [Suspect]
     Indication: TYPE 2 DIABETES MELLITUS
     Dosage: 5 UG, 2/D, 10 UG, 2/D,  SUBCUTANEOUS
     Route: 058
     Dates: start: 20070601
  3. GLUCOVANCE [Concomitant]
  4. POTASSIUM (POTASSIUM) [Concomitant]
  5. LASIX [Concomitant]
  6. COREG [Concomitant]
  7. LOTREL (AMLODIPINE, BENAZEPRIL HYDROCHLLRIDE) [Concomitant]

REACTIONS (4)
  - BLOOD GLUCOSE INCREASED [None]
  - DECREASED APPETITE [None]
  - DYSGEUSIA [None]
  - MUSCLE SPASMS [None]
